FAERS Safety Report 9038846 (Version 2)
Quarter: 2013Q2

REPORT INFORMATION
  Report Type: Report from Study
  Country: US (occurrence: US)
  Receive Date: 20130129
  Receipt Date: 20130523
  Transmission Date: 20140414
  Serious: Yes (Hospitalization)
  Sender: FDA-Public Use
  Company Number: US-UCBSA-076362

PATIENT
  Age: 66 Year
  Sex: Female
  Weight: 80.5 kg

DRUGS (18)
  1. LACOSAMIDE [Suspect]
     Indication: EPILEPSY
     Route: 048
     Dates: start: 20130107, end: 20130115
  2. LACOSAMIDE [Suspect]
     Indication: EPILEPSY
     Route: 048
     Dates: start: 20130116
  3. DIOVAN [Concomitant]
     Indication: HYPERTENSION
     Route: 048
     Dates: start: 2002
  4. PANTOPRAZOLE [Concomitant]
     Indication: GASTROOESOPHAGEAL REFLUX DISEASE
     Route: 048
     Dates: start: 2007
  5. CALMAG [Concomitant]
     Indication: SUPPLEMENTATION THERAPY
     Route: 048
     Dates: start: 2000
  6. LEVOXYL [Concomitant]
     Indication: HYPOTHYROIDISM
     Route: 048
     Dates: start: 1986
  7. SIMVASTATIN [Concomitant]
     Indication: HYPERCHOLESTEROLAEMIA
     Route: 048
     Dates: start: 1992
  8. CARVEDILOL [Concomitant]
     Indication: HYPERTENSION
     Route: 048
     Dates: start: 2007
  9. GLUCOSAMINE CHONDROITIN [Concomitant]
     Indication: SUPPLEMENTATION THERAPY
     Dosage: 1500MG/1200MG DAILY
     Route: 048
     Dates: start: 201205
  10. VITAMIN D [Concomitant]
     Indication: VITAMIN SUPPLEMENTATION
     Dosage: 8000 U DAILY
     Route: 048
     Dates: start: 201205
  11. SALT TABLETS [Concomitant]
     Indication: HYPONATRAEMIA
     Route: 048
     Dates: start: 2000
  12. MAGNESIUM [Concomitant]
     Indication: MINERAL SUPPLEMENTATION
     Route: 048
     Dates: start: 2000
  13. MELOXICAM [Concomitant]
     Indication: HEADACHE
     Route: 048
     Dates: start: 201209
  14. PROPANOLOL [Concomitant]
     Indication: HEADACHE
     Route: 048
     Dates: start: 20130109
  15. DEPAKOTE ER [Concomitant]
     Indication: EPILEPSY
     Route: 048
     Dates: start: 1990, end: 20130121
  16. DEPAKOTE ER [Concomitant]
     Indication: EPILEPSY
     Route: 048
     Dates: start: 20130121
  17. KEPPRA [Concomitant]
     Indication: EPILEPSY
     Route: 048
     Dates: start: 2011, end: 20130116
  18. KEPPRA [Concomitant]
     Indication: EPILEPSY
     Route: 048
     Dates: start: 20130116

REACTIONS (2)
  - Mental status changes [Recovered/Resolved]
  - Pneumonia [Recovered/Resolved]
